FAERS Safety Report 19509246 (Version 5)
Quarter: 2021Q4

REPORT INFORMATION
  Report Type: Spontaneous
  Country: US (occurrence: US)
  Receive Date: 20210709
  Receipt Date: 20211101
  Transmission Date: 20220303
  Serious: Yes (Other)
  Sender: FDA-Public Use
  Company Number: US-AMGEN-USASP2021103912

PATIENT
  Age: 63 Year
  Sex: Female

DRUGS (16)
  1. OTEZLA [Suspect]
     Active Substance: APREMILAST
     Indication: Psoriatic arthropathy
     Dosage: 30 MILLIGRAM, BID
     Route: 048
  2. OTEZLA [Suspect]
     Active Substance: APREMILAST
     Dosage: 30 MILLIGRAM, QD
     Route: 048
  3. ASPIRIN [Concomitant]
     Active Substance: ASPIRIN
     Dosage: UNK
  4. CALCIUM +D [CALCIUM;ERGOCALCIFEROL] [Concomitant]
     Dosage: UNK
  5. CARVEDILOL [Concomitant]
     Active Substance: CARVEDILOL
     Dosage: 3.125 MILLIGRAM
     Route: 048
  6. DILTIAZEM [Concomitant]
     Active Substance: DILTIAZEM
     Dosage: 120 MILLIGRAM Q24 HOUR
     Route: 048
  7. GABAPENTIN [Concomitant]
     Active Substance: GABAPENTIN
     Dosage: 300 MILLIGRAM, BID
     Route: 048
  8. HYDROCHLOROTHIAZIDE\VALSARTAN [Concomitant]
     Active Substance: HYDROCHLOROTHIAZIDE\VALSARTAN
     Dosage: HYDROCHLOROTHIAZIDE 25 MG, VALSARTAN 320 MG
     Route: 048
  9. VITAMIN D3 [Concomitant]
     Active Substance: CHOLECALCIFEROL
     Dosage: UNK
  10. VIT E [TOCOPHEROL] [Concomitant]
     Dosage: 180 MILLIGRAM
     Route: 048
  11. CALCIUM CARBONATE [Concomitant]
     Active Substance: CALCIUM CARBONATE
     Dosage: 600 MILLIGRAM
     Route: 048
  12. MODERNA COVID-19 VACCINE [Concomitant]
     Active Substance: CX-024414
     Dosage: 0.5 MILLILITER
     Dates: start: 20210415
  13. DIPHTHERIA TETANUS PERTUSSIS VACCINE [Concomitant]
     Dosage: UNK
     Dates: start: 20190225
  14. INFLUENZA VIRUS VACCINE [Concomitant]
     Active Substance: INFLUENZA VIRUS VACCINE
     Dosage: UNK
     Dates: start: 20201104
  15. PNEUMOCOCCAL VACCINE POLYVALENT NOS [Concomitant]
     Active Substance: PNEUMOCOCCAL VACCINE POLYVALENT
     Dosage: UNK
     Dates: start: 20190614
  16. METHOTREXATE [Concomitant]
     Active Substance: METHOTREXATE
     Dosage: UNK
     Dates: start: 2015

REACTIONS (6)
  - Psoriatic arthropathy [Not Recovered/Not Resolved]
  - Therapeutic product effect decreased [Recovered/Resolved]
  - Sleep disorder due to a general medical condition [Unknown]
  - Ocular hyperaemia [Unknown]
  - Dry eye [Unknown]
  - Depression [Unknown]

NARRATIVE: CASE EVENT DATE: 20210904
